FAERS Safety Report 6059317-X (Version None)
Quarter: 2009Q1

REPORT INFORMATION
  Report Type: 
  Country: None (occurrence: None)
  Receive Date: 20090128
  Receipt Date: 20090113
  Transmission Date: 20090719
  Serious: Yes (Death, Hospitalization)
  Sender: FDA-Public Use
  Company Number: BE-GDP-09405220

PATIENT
  Sex: Male

DRUGS (10)
  1. METVIX-PDT (METHYL AMINOLEVULINATE HYDROCHLORIDE) (16 %, 16 %, 16 %, 1 [Suspect]
     Dosage: (600 MG TOPICAL), (400 MG TOPICAL)
     Route: 061
     Dates: start: 20080722, end: 20080722
  2. METVIX-PDT (METHYL AMINOLEVULINATE HYDROCHLORIDE) (16 %, 16 %, 16 %, 1 [Suspect]
     Dosage: (600 MG TOPICAL), (400 MG TOPICAL)
     Route: 061
     Dates: start: 20080805, end: 20080805
  3. METVIX-PDT (METHYL AMINOLEVULINATE HYDROCHLORIDE) (16 %, 16 %, 16 %, 1 [Suspect]
     Dosage: (600 MG TOPICAL), (400 MG TOPICAL)
     Route: 061
     Dates: start: 20080819, end: 20080819
  4. METVIX-PDT (METHYL AMINOLEVULINATE HYDROCHLORIDE) (16 %, 16 %, 16 %, 1 [Suspect]
     Dosage: (600 MG TOPICAL), (400 MG TOPICAL)
     Route: 061
     Dates: start: 20080902, end: 20080902
  5. METVIX-PDT (METHYL AMINOLEVULINATE HYDROCHLORIDE) (16 %, 16 %, 16 %, 1 [Suspect]
     Dosage: (600 MG TOPICAL), (400 MG TOPICAL)
     Route: 061
     Dates: start: 20081121, end: 20081121
  6. METVIX-PDT (METHYL AMINOLEVULINATE HYDROCHLORIDE) (16 %, 16 %, 16 %, 1 [Suspect]
     Dosage: (600 MG TOPICAL), (400 MG TOPICAL)
     Route: 061
     Dates: start: 20081205, end: 20081205
  7. SINTROM [Concomitant]
  8. CORDARONE [Concomitant]
  9. TENORMIN [Concomitant]
  10. COVERSYL /00790701/ [Concomitant]

REACTIONS (4)
  - ENCEPHALITIS HERPES [None]
  - HYPERPYREXIA [None]
  - MALAISE [None]
  - PAIN [None]
